FAERS Safety Report 16814685 (Version 1)
Quarter: 2019Q3

REPORT INFORMATION
  Report Type: Spontaneous
  Country: US (occurrence: US)
  Receive Date: 20190917
  Receipt Date: 20190917
  Transmission Date: 20191005
  Serious: No
  Sender: FDA-Public Use
  Company Number: US-ALLERGAN-1849160US

PATIENT
  Sex: Female

DRUGS (3)
  1. UNKNOWN MEDICATION OF DEPRESSION [Concomitant]
     Indication: DEPRESSION
     Dosage: UNK
     Route: 065
  2. UNKNOWN MEDICATION OF HYPERTENSION [Concomitant]
     Indication: HYPERTENSION
     Dosage: UNK
     Route: 065
  3. LINZESS [Suspect]
     Active Substance: LINACLOTIDE
     Indication: CONSTIPATION
     Dosage: 72 ?G, QD (BEFORE BREAKFAST)
     Route: 065
     Dates: start: 201809

REACTIONS (4)
  - Product dose omission [Unknown]
  - Diarrhoea [Not Recovered/Not Resolved]
  - Expired product administered [Unknown]
  - Product dispensing error [Unknown]

NARRATIVE: CASE EVENT DATE: 2018
